FAERS Safety Report 26190000 (Version 1)
Quarter: 2025Q4

REPORT INFORMATION
  Report Type: Spontaneous
  Country: US (occurrence: US)
  Receive Date: 20251223
  Receipt Date: 20251223
  Transmission Date: 20260119
  Serious: No
  Sender: CIPLA
  Company Number: US-CIPLA LTD.-2025US15949

PATIENT

DRUGS (2)
  1. ALBUTEROL [Suspect]
     Active Substance: ALBUTEROL
     Indication: Product used for unknown indication
     Dosage: UNK
  2. ALBUTEROL [Suspect]
     Active Substance: ALBUTEROL
     Dosage: UNK

REACTIONS (2)
  - Drug dose omission by device [Unknown]
  - Device delivery system issue [Unknown]
